FAERS Safety Report 10685091 (Version 2)
Quarter: 2015Q1

REPORT INFORMATION
  Report Type: Spontaneous
  Country: US (occurrence: None)
  Receive Date: 20141229
  Receipt Date: 20150227
  Transmission Date: 20150720
  Serious: Yes (Death)
  Sender: FDA-Public Use
  Company Number: 1713747-2014-999229

PATIENT
  Age: 64 Year
  Sex: Female
  Weight: 61.9 kg

DRUGS (29)
  1. 0.9% SODIUM CHLORIDE INJECTION [Suspect]
     Active Substance: SODIUM CHLORIDE
     Indication: CHRONIC KIDNEY DISEASE
     Dosage: 400CC, HEMODIALYSIS
     Dates: start: 201112, end: 201412
  2. GENTAMICIN OINTMENT [Concomitant]
  3. NEPHROCAPS [Concomitant]
     Active Substance: ASCORBIC ACID\BIOTIN\CYANOCOBALAMIN\FOLIC ACID\NIACIN\PANTOTHENIC ACID\PYRIDOXINE\RIBOFLAVIN\THIAMINE
  4. FRESENIUS 2008T HEMODIALYSIS SYSTEM [Concomitant]
  5. FRESENIUS DIALYZER [Concomitant]
  6. MELATONIN [Concomitant]
     Active Substance: MELATONIN
  7. SENSIPAR [Concomitant]
     Active Substance: CINACALCET HYDROCHLORIDE
  8. COUMADIN [Concomitant]
     Active Substance: WARFARIN SODIUM
  9. NATURALYTE BICARBONATE AND DRY ACID [Concomitant]
  10. LABETALOL [Concomitant]
     Active Substance: LABETALOL\LABETALOL HYDROCHLORIDE
  11. ZOLOFT [Concomitant]
     Active Substance: SERTRALINE HYDROCHLORIDE
  12. MIRALAX [Concomitant]
     Active Substance: POLYETHYLENE GLYCOL 3350
  13. NITRODUR PATCH [Concomitant]
  14. ZEMPLAR [Concomitant]
     Active Substance: PARICALCITOL
  15. CINACALCET [Concomitant]
     Active Substance: CINACALCET
  16. GRANUFLO [Concomitant]
     Active Substance: ACETIC ACID\SODIUM ACETATE
  17. CYCLOBENZAPRINE [Concomitant]
     Active Substance: CYCLOBENZAPRINE
  18. PREDNISONE ACETATE [Concomitant]
     Active Substance: PREDNISONE ACETATE
  19. PLAVIX [Concomitant]
     Active Substance: CLOPIDOGREL BISULFATE
  20. PRILOSEC [Concomitant]
     Active Substance: OMEPRAZOLE MAGNESIUM
  21. LIPITOR [Concomitant]
     Active Substance: ATORVASTATIN CALCIUM
  22. VENOFER [Concomitant]
     Active Substance: IRON SUCROSE
  23. ACETAMINOPHEN. [Concomitant]
     Active Substance: ACETAMINOPHEN
  24. OXYCODONE [Concomitant]
     Active Substance: OXYCODONE
  25. FMC BLOODLINES [Concomitant]
  26. BENADRYL [Concomitant]
     Active Substance: DIPHENHYDRAMINE HYDROCHLORIDE
  27. PERCOCENT [Concomitant]
  28. PHOSLO [Concomitant]
     Active Substance: CALCIUM ACETATE
  29. CARVEDILOL. [Concomitant]
     Active Substance: CARVEDILOL

REACTIONS (2)
  - Cardio-respiratory arrest [None]
  - Myocardial infarction [None]

NARRATIVE: CASE EVENT DATE: 20141204
